FAERS Safety Report 8961667 (Version 1)
Quarter: 2012Q4

REPORT INFORMATION
  Report Type: Report from Study
  Country: CA (occurrence: CA)
  Receive Date: 20121213
  Receipt Date: 20121213
  Transmission Date: 20130627
  Serious: Yes (Other)
  Sender: FDA-Public Use
  Company Number: CA-JNJFOC-20121201591

PATIENT
  Age: 47 Year
  Sex: Female
  Weight: 64 kg

DRUGS (5)
  1. REMICADE [Suspect]
     Indication: CROHN^S DISEASE
     Route: 042
     Dates: start: 20100514
  2. IMURAN [Concomitant]
     Route: 065
  3. CELEXA [Concomitant]
     Route: 065
  4. PARIET [Concomitant]
     Route: 065
  5. ASACOL [Concomitant]
     Route: 065

REACTIONS (2)
  - Gingival operation [Not Recovered/Not Resolved]
  - Gingival pain [Not Recovered/Not Resolved]
